FAERS Safety Report 9342931 (Version 2)
Quarter: 2013Q3

REPORT INFORMATION
  Report Type: Spontaneous
  Country: AU (occurrence: AU)
  Receive Date: 20130611
  Receipt Date: 20130703
  Transmission Date: 20140515
  Serious: Yes (Other)
  Sender: FDA-Public Use
  Company Number: AU-PFIZER INC-2013175646

PATIENT
  Age: 40 Year
  Sex: Female
  Weight: 94 kg

DRUGS (4)
  1. PRISTIQ [Suspect]
     Indication: DEPRESSION
     Dosage: 200 MG, UNK
     Route: 048
     Dates: start: 20090330, end: 20120924
  2. PRISTIQ [Suspect]
     Dosage: 150MG, 100MG
     Route: 048
     Dates: end: 20121128
  3. MARIJUANA [Concomitant]
     Dosage: UNK
  4. TOBACCO [Concomitant]
     Dosage: 3-6 PER DAY

REACTIONS (1)
  - Cholestasis of pregnancy [Recovering/Resolving]
